FAERS Safety Report 17596774 (Version 2)
Quarter: 2021Q4

REPORT INFORMATION
  Report Type: Spontaneous
  Country: CA (occurrence: CA)
  Receive Date: 20200330
  Receipt Date: 20211203
  Transmission Date: 20220303
  Serious: Yes (Hospitalization, Other)
  Sender: FDA-Public Use
  Company Number: CA-SA-2020SA067082

PATIENT
  Age: 48 Year
  Sex: Male

DRUGS (9)
  1. CLOPIDOGREL BISULFATE [Suspect]
     Active Substance: CLOPIDOGREL BISULFATE
     Indication: Transient ischaemic attack
     Dosage: UNK
     Route: 065
  2. TESTOSTERONE [Suspect]
     Active Substance: TESTOSTERONE
     Indication: Product used for unknown indication
     Dosage: 5 G, QD
     Route: 061
  3. CABERGOLINE [Suspect]
     Active Substance: CABERGOLINE
     Indication: Product used for unknown indication
     Dosage: UNK
     Route: 048
  4. CODEINE [Suspect]
     Active Substance: CODEINE
     Indication: Product used for unknown indication
     Dosage: UNK
     Route: 065
  5. METFORMIN HYDROCHLORIDE [Suspect]
     Active Substance: METFORMIN HYDROCHLORIDE
     Indication: Product used for unknown indication
     Dosage: 500 MG, TID
     Route: 065
  6. METFORMIN HYDROCHLORIDE [Suspect]
     Active Substance: METFORMIN HYDROCHLORIDE
  7. OCTREOTIDE [Suspect]
     Active Substance: OCTREOTIDE
     Indication: Acromegaly
     Dosage: 30 MG, Q3W
     Route: 030
  8. SOMAVERT [Suspect]
     Active Substance: PEGVISOMANT
     Indication: Acromegaly
     Dosage: 20 MG, QD
     Route: 058
  9. SOMAVERT [Suspect]
     Active Substance: PEGVISOMANT
     Dosage: 30 MG, QD
     Route: 058

REACTIONS (15)
  - Blood pressure abnormal [Unknown]
  - Diabetes mellitus [Unknown]
  - Dysarthria [Unknown]
  - Erectile dysfunction [Unknown]
  - Hyperhidrosis [Unknown]
  - Joint swelling [Unknown]
  - Osteoarthritis [Unknown]
  - Pituitary enlargement [Unknown]
  - Pituitary tumour benign [Unknown]
  - Polyp [Unknown]
  - Prognathism [Unknown]
  - Sleep apnoea syndrome [Unknown]
  - Transient ischaemic attack [Unknown]
  - Weight abnormal [Unknown]
  - Drug ineffective [Unknown]
